FAERS Safety Report 22019690 (Version 3)
Quarter: 2023Q2

REPORT INFORMATION
  Report Type: Report from Study
  Country: US (occurrence: US)
  Receive Date: 20230222
  Receipt Date: 20230615
  Transmission Date: 20230722
  Serious: Yes (Death, Hospitalization)
  Sender: FDA-Public Use
  Company Number: US-ARGENX-2022-ARGX-US002778

PATIENT
  Sex: Male
  Weight: 70 kg

DRUGS (1)
  1. VYVGART [Suspect]
     Active Substance: EFGARTIGIMOD ALFA-FCAB
     Indication: Myasthenia gravis
     Dosage: 10 MG/KG
     Route: 042
     Dates: start: 20221215, end: 20230214

REACTIONS (4)
  - Death [Fatal]
  - Dyspnoea [Unknown]
  - COVID-19 pneumonia [Unknown]
  - Condition aggravated [Not Recovered/Not Resolved]
